FAERS Safety Report 4702751-8 (Version None)
Quarter: 2005Q2

REPORT INFORMATION
  Report Type: 
  Country: None (occurrence: None)
  Receive Date: 20050628
  Receipt Date: 20050628
  Transmission Date: 20051028
  Serious: Yes (Other)
  Sender: FDA-Public Use
  Company Number: None

PATIENT
  Age: 62 Year
  Sex: Male
  Weight: 90.71 kg

DRUGS (2)
  1. LEXAPRO [Suspect]
     Indication: DEPRESSION
     Dosage: 10 MG PO DAILY
     Route: 048
     Dates: start: 20050613, end: 20050622
  2. LEXAPRO [Suspect]
     Indication: DEPRESSION
     Dosage: 10 MG PO DAILY
     Route: 048
     Dates: start: 20050626, end: 20050628

REACTIONS (2)
  - HYPERTENSION [None]
  - TREMOR [None]
